FAERS Safety Report 19883834 (Version 1)
Quarter: 2021Q3

REPORT INFORMATION
  Report Type: Spontaneous
  Country: US (occurrence: US)
  Receive Date: 20210925
  Receipt Date: 20210925
  Transmission Date: 20211014
  Serious: Yes (Hospitalization)
  Sender: FDA-Public Use
  Company Number: None

PATIENT
  Age: 39 Year
  Sex: Male
  Weight: 113 kg

DRUGS (3)
  1. DIPHENHYDRAMINE 50 MG [Concomitant]
     Dates: start: 20210922, end: 20210922
  2. ACETAMINOPHEN 650 MG [Concomitant]
     Active Substance: ACETAMINOPHEN
     Dates: start: 20210922, end: 20210922
  3. REGEN?COV [Suspect]
     Active Substance: CASIRIVIMAB\IMDEVIMAB
     Indication: COVID-19
     Dosage: ?          OTHER FREQUENCY:ONCE;?
     Route: 041
     Dates: start: 20210922, end: 20210922

REACTIONS (5)
  - Hyperhidrosis [None]
  - Dizziness [None]
  - Blood pressure decreased [None]
  - Unresponsive to stimuli [None]
  - Depressed level of consciousness [None]

NARRATIVE: CASE EVENT DATE: 20210922
